FAERS Safety Report 6535455-X (Version None)
Quarter: 2010Q1

REPORT INFORMATION
  Report Type: 
  Country: None (occurrence: None)
  Receive Date: 20100105
  Receipt Date: 20091221
  Transmission Date: 20100710
  Serious: No
  Sender: FDA-Public Use
  Company Number: SPI200900410

PATIENT
  Age: 43 Year
  Sex: Male
  Weight: 73.9 kg

DRUGS (1)
  1. AMITIZA [Suspect]
     Indication: CONSTIPATION
     Dosage: 24 MCG, PRN, ORAL
     Route: 048
     Dates: start: 20091220, end: 20091221

REACTIONS (5)
  - CHEST PAIN [None]
  - DYSKINESIA [None]
  - HEADACHE [None]
  - HEART RATE INCREASED [None]
  - PAIN [None]
